FAERS Safety Report 5051584-4 (Version None)
Quarter: 2006Q3

REPORT INFORMATION
  Report Type: 
  Country: None (occurrence: None)
  Receive Date: 20060711
  Receipt Date: 20060623
  Transmission Date: 20061208
  Serious: No
  Sender: FDA-Public Use
  Company Number: US200601001087

PATIENT
  Age: 48 Year
  Sex: Female
  Weight: 68 kg

DRUGS (7)
  1. ZYPREXA [Suspect]
     Indication: BIPOLAR DISORDER
     Dosage: SEE IMAGE
     Route: 048
     Dates: start: 20030714, end: 20030728
  2. ZYPREXA [Suspect]
     Indication: BIPOLAR DISORDER
     Dosage: SEE IMAGE
     Route: 048
     Dates: start: 20030728, end: 20051017
  3. SEROQUEL [Concomitant]
  4. PROZAC [Concomitant]
  5. BUSPAR [Concomitant]
  6. ORTHO-NOVUM 1/35 [Concomitant]
  7. CRESTOR [Concomitant]

REACTIONS (5)
  - DIABETES MELLITUS NON-INSULIN-DEPENDENT [None]
  - DRUG EFFECT DECREASED [None]
  - MENORRHAGIA [None]
  - METABOLIC SYNDROME [None]
  - OBESITY [None]
